FAERS Safety Report 8770521 (Version 2)
Quarter: 2012Q4

REPORT INFORMATION
  Report Type: 
  Country: CN (occurrence: CN)
  Receive Date: 20120906
  Receipt Date: 20120923
  Transmission Date: 20130627
  Serious: Yes (Other)
  Sender: FDA-Public Use
  Company Number: CN-ABBOTT-12P-035-0975494-00

PATIENT

DRUGS (5)
  1. DEPAKINE [Suspect]
     Indication: EPILEPSY
     Route: 048
     Dates: start: 201104, end: 201110
  2. DEPAKINE [Suspect]
     Route: 048
     Dates: start: 201202, end: 201203
  3. DEPAKINE [Suspect]
     Route: 048
     Dates: start: 201203, end: 201206
  4. DEPAKINE [Suspect]
     Route: 048
     Dates: start: 201206
  5. DEPAKINE [Suspect]
     Route: 048
     Dates: start: 201110, end: 201202

REACTIONS (8)
  - Trismus [Unknown]
  - Epilepsy [Unknown]
  - Lip discolouration [Unknown]
  - Salivary hypersecretion [Unknown]
  - Confusional state [Unknown]
  - Muscle spasms [Unknown]
  - Parasomnia [Unknown]
  - Enuresis [Unknown]
